FAERS Safety Report 7402622-2 (Version None)
Quarter: 2011Q1

REPORT INFORMATION
  Report Type: 
  Country: None (occurrence: None)
  Receive Date: 20110330
  Receipt Date: 20110318
  Transmission Date: 20110831
  Serious: Yes (Other)
  Sender: FDA-Public Use
  Company Number: NGX_00349_2011

PATIENT
  Sex: Female
  Weight: 74 kg

DRUGS (2)
  1. QUTENZA [Suspect]
     Indication: NEURALGIA
     Dosage: ([PATCH])
     Dates: start: 20110303, end: 20110303
  2. CLEANSING  GEL [Concomitant]

REACTIONS (6)
  - SWOLLEN TONGUE [None]
  - THROAT IRRITATION [None]
  - HYPERSENSITIVITY [None]
  - PRURITUS [None]
  - EYE IRRITATION [None]
  - URTICARIA [None]
